FAERS Safety Report 5117095-2 (Version None)
Quarter: 2006Q3

REPORT INFORMATION
  Report Type: 
  Country: None (occurrence: None)
  Receive Date: 20060925
  Receipt Date: 20060911
  Transmission Date: 20061208
  Serious: Yes (Life-Threatening, Hospitalization)
  Sender: FDA-Public Use
  Company Number: 2006110894

PATIENT
  Age: 80 Year
  Sex: Male
  Weight: 48.8 kg

DRUGS (7)
  1. LINEZOLID [Suspect]
     Indication: PATHOGEN RESISTANCE
     Dosage: 1200 MG (600 MG, 2 IN 1 D), ORAL
     Route: 048
     Dates: start: 20060608, end: 20060707
  2. LINEZOLID [Suspect]
     Indication: STAPHYLOCOCCAL INFECTION
     Dosage: 1200 MG (600 MG, 2 IN 1 D), ORAL
     Route: 048
     Dates: start: 20060608, end: 20060707
  3. LISINOPRIL [Concomitant]
  4. ACETAMINOPHEN [Concomitant]
  5. SALBUTAMOL       (SALBUTAMOL) [Concomitant]
  6. SIMVASTATIN [Concomitant]
  7. WARFARIN SODIUM [Concomitant]

REACTIONS (3)
  - DIPLOPIA [None]
  - OPTIC NEUROPATHY [None]
  - PLATELET COUNT DECREASED [None]
